FAERS Safety Report 5678911-9 (Version None)
Quarter: 2008Q1

REPORT INFORMATION
  Report Type: 
  Country: None (occurrence: None)
  Receive Date: 20080325
  Receipt Date: 20080317
  Transmission Date: 20080703
  Serious: Yes (Other)
  Sender: FDA-Public Use
  Company Number: US-ASTRAZENECA-2008UW04676

PATIENT
  Age: 50 Year
  Sex: Female

DRUGS (11)
  1. SYMBICORT [Suspect]
     Indication: BRONCHIAL HYPERREACTIVITY
     Route: 055
     Dates: start: 20080201
  2. RED YEAST RICE [Concomitant]
     Indication: HYPERLIPIDAEMIA
  3. ZOLOFT [Concomitant]
  4. CENTRUM SILVER [Concomitant]
  5. COENZYME Q10 [Concomitant]
  6. FISH OIL [Concomitant]
  7. FLAXSEED OIL [Concomitant]
  8. GLUCOSAMINE WITH CHONDROITIN [Concomitant]
  9. CALCIUM [Concomitant]
  10. MAGNESIUM [Concomitant]
  11. ZINC [Concomitant]

REACTIONS (2)
  - CLONIC CONVULSION [None]
  - FEELING ABNORMAL [None]
